FAERS Safety Report 24157666 (Version 4)
Quarter: 2024Q3

REPORT INFORMATION
  Report Type: Spontaneous
  Country: US (occurrence: US)
  Receive Date: 20240731
  Receipt Date: 20240807
  Transmission Date: 20241017
  Serious: Yes (Other)
  Sender: GLAXOSMITHKLINE
  Company Number: US-GSK-US2024093510

PATIENT

DRUGS (21)
  1. BENLYSTA [Suspect]
     Active Substance: BELIMUMAB
     Indication: Systemic lupus erythematosus
     Dosage: 1 ML, WE (1200MG)
     Route: 058
     Dates: start: 20240111
  2. BENLYSTA [Suspect]
     Active Substance: BELIMUMAB
  3. BENLYSTA [Suspect]
     Active Substance: BELIMUMAB
     Indication: Product used for unknown indication
     Dosage: UNK
  4. ELAVIL [Concomitant]
     Active Substance: AMITRIPTYLINE HYDROCHLORIDE
     Indication: Systemic lupus erythematosus
     Dosage: 1 DF, AT BEDTIME
     Dates: start: 20231123
  5. TYLENOL [Concomitant]
     Active Substance: ACETAMINOPHEN
     Indication: Systemic lupus erythematosus
     Dosage: 325 MG, EVERY 4 TO 6 HOURS AS NEEDED
     Route: 048
     Dates: start: 20231123
  6. LIPITOR [Concomitant]
     Active Substance: ATORVASTATIN CALCIUM
     Indication: Hypertension
     Dosage: 1 DF, QD
     Dates: start: 20231123
  7. PULMICORT TURBUHALER [Concomitant]
     Active Substance: BUDESONIDE
     Indication: Asthma
     Dosage: 2 ML, BID (0.5MG TOTAL)
     Route: 055
     Dates: start: 20231123
  8. COENZYME Q10 [Concomitant]
     Active Substance: DIETARY SUPPLEMENT\UBIDECARENONE
     Indication: Skin wrinkling
     Dosage: USE AS NEEDED
     Dates: start: 20231123
  9. EPINEPHRINE [Concomitant]
     Active Substance: EPINEPHRINE
     Indication: Multiple allergies
     Dosage: 0.3 ML
     Route: 030
     Dates: start: 20231123
  10. DRISDOL [Concomitant]
     Active Substance: ERGOCALCIFEROL
     Indication: Systemic lupus erythematosus
     Dosage: 1 DF, WE
     Route: 048
     Dates: start: 20231123
  11. ALLEGRA [Concomitant]
     Active Substance: FEXOFENADINE HYDROCHLORIDE
     Indication: Hypersensitivity
     Dosage: 30 MG, QD
     Route: 048
     Dates: start: 20231123
  12. LASIX [Concomitant]
     Active Substance: FUROSEMIDE
     Indication: Systemic lupus erythematosus
     Dosage: UNK, QD, 1-2 TABLETS (20-40MG TOTAL)
     Route: 048
     Dates: start: 20231123
  13. HYDRODIURIL [Concomitant]
     Active Substance: HYDROCHLOROTHIAZIDE
     Indication: Hypertension
     Dosage: 1 DF, QD
     Route: 048
     Dates: start: 20231123
  14. METROCREAM [Concomitant]
     Active Substance: METRONIDAZOLE
     Indication: Rosacea
     Dosage: UNK,APPLY TO FACE AT BEDTIME
     Dates: start: 20231123
  15. SINGULAIR [Concomitant]
     Active Substance: MONTELUKAST SODIUM
     Indication: Asthma
     Dosage: 1 DF, QD
     Route: 048
     Dates: start: 20231123
  16. SINGULAIR [Concomitant]
     Active Substance: MONTELUKAST SODIUM
     Indication: Multiple allergies
  17. PRILOSEC [Concomitant]
     Active Substance: OMEPRAZOLE MAGNESIUM
     Indication: Dyspepsia
     Dosage: 1 DF, QD
     Dates: start: 20231123
  18. POTASSIUM CHLORIDE [Concomitant]
     Active Substance: POTASSIUM CHLORIDE
     Indication: Blood potassium decreased
     Dosage: 1 DF, QD
     Route: 048
     Dates: start: 20231123
  19. PHENERGAN [Concomitant]
     Active Substance: PROMETHAZINE HYDROCHLORIDE
     Indication: Nausea
     Dosage: 1 DF, EEVRY 6 MONTH
     Route: 048
     Dates: start: 20231123
  20. PHENERGAN [Concomitant]
     Active Substance: PROMETHAZINE HYDROCHLORIDE
     Indication: Vomiting
  21. HYDROXYCHLOROQUINE [Concomitant]
     Active Substance: HYDROXYCHLOROQUINE
     Indication: Systemic lupus erythematosus
     Dosage: 1 DF, QD, WITH FOOD OR MILK
     Route: 048
     Dates: start: 20231123

REACTIONS (8)
  - Anaphylactic shock [Unknown]
  - Near death experience [Unknown]
  - Illness [Unknown]
  - Stress [Not Recovered/Not Resolved]
  - Feeling abnormal [Unknown]
  - Inappropriate schedule of product administration [Unknown]
  - Product prescribing error [Unknown]
  - Product dose omission issue [Unknown]

NARRATIVE: CASE EVENT DATE: 20240727
